FAERS Safety Report 8821388 (Version 1)
Quarter: 2012Q4

REPORT INFORMATION
  Report Type: Report from Study
  Country: JP (occurrence: JP)
  Receive Date: 20121002
  Receipt Date: 20121002
  Transmission Date: 20130627
  Serious: Yes (Hospitalization)
  Sender: FDA-Public Use
  Company Number: JP-009507513-1209JPN011252

PATIENT
  Age: 67 Year
  Sex: Female
  Weight: 53 kg

DRUGS (5)
  1. PEGINTRON [Suspect]
     Indication: HEPATITIS C
     Dosage: 1.5 Microgram per kilogram, qw
     Route: 058
  2. PEGINTRON [Suspect]
     Dosage: 1.0 Microgram per kilogram, qw
     Route: 058
  3. REBETOL [Suspect]
     Indication: HEPATITIS C
     Dosage: 400 mg, qd
     Route: 048
  4. REBETOL [Suspect]
     Dosage: 200 mg, qd
     Route: 048
     Dates: end: 20120815
  5. TELAVIC [Suspect]
     Indication: HEPATITIS C
     Dosage: 1500mg, qd
     Route: 048
     Dates: start: 20120613, end: 20120815

REACTIONS (1)
  - Decreased appetite [Recovered/Resolved]
